FAERS Safety Report 8918880 (Version 1)
Quarter: 2012Q4

REPORT INFORMATION
  Report Type: Spontaneous
  Country: US (occurrence: None)
  Receive Date: 20121115
  Receipt Date: 20121115
  Transmission Date: 20130627
  Serious: Yes (Disabling)
  Sender: FDA-Public Use
  Company Number: None

PATIENT
  Age: 62 Year
  Sex: Male
  Weight: 74.84 kg

DRUGS (1)
  1. FINASTERIDE 5 MG AUROBINDO [Suspect]
     Indication: BENIGN PROSTATIC HYPERTROPHY
     Route: 048
     Dates: start: 20100909, end: 20121113

REACTIONS (3)
  - Ejaculation disorder [None]
  - Peyronie^s disease [None]
  - Semen discolouration [None]
